FAERS Safety Report 9758148 (Version 1)
Quarter: 2013Q4

REPORT INFORMATION
  Report Type: Spontaneous
  Country: US (occurrence: None)
  Receive Date: 20131213
  Receipt Date: 20131213
  Transmission Date: 20140711
  Serious: Yes (Life-Threatening, Disabling, Other)
  Sender: FDA-Public Use
  Company Number: None

PATIENT
  Age: 41 Year
  Sex: Male
  Weight: 70.76 kg

DRUGS (1)
  1. CIPROFLOXACIN 250 MG BAYER [Suspect]
     Indication: DIARRHOEA
     Dosage: 1  TWICE DAILY  TAKEN BY MOUTH
     Route: 048
     Dates: start: 20130613, end: 20130620

REACTIONS (3)
  - Tendon rupture [None]
  - Neuropathy peripheral [None]
  - Collagen disorder [None]
